FAERS Safety Report 5340938-4 (Version None)
Quarter: 2007Q2

REPORT INFORMATION
  Report Type: 
  Country: None (occurrence: None)
  Receive Date: 20070405
  Receipt Date: 20061102
  Transmission Date: 20071010
  Serious: No
  Sender: FDA-Public Use
  Company Number: US200605006835

PATIENT
  Age: 49 Year
  Sex: Female

DRUGS (2)
  1. CYMBALTA [Suspect]
     Indication: DEPRESSION
     Dates: start: 20060501, end: 20060526
  2. PHENTERMINE [Concomitant]

REACTIONS (19)
  - AMNESIA [None]
  - ANGER [None]
  - DECREASED APPETITE [None]
  - DEPRESSION [None]
  - DIZZINESS [None]
  - DRUG INEFFECTIVE [None]
  - EMOTIONAL DISORDER [None]
  - ENERGY INCREASED [None]
  - FEELING ABNORMAL [None]
  - HALLUCINATION, VISUAL [None]
  - HEADACHE [None]
  - HOSTILITY [None]
  - INSOMNIA [None]
  - IRRITABILITY [None]
  - NAUSEA [None]
  - NIGHTMARE [None]
  - PARAESTHESIA [None]
  - THINKING ABNORMAL [None]
  - VOMITING [None]
